FAERS Safety Report 4851338-5 (Version None)
Quarter: 2005Q4

REPORT INFORMATION
  Report Type: 
  Country: None (occurrence: None)
  Receive Date: 20051207
  Receipt Date: 20051128
  Transmission Date: 20060501
  Serious: Yes (Other)
  Sender: FDA-Public Use
  Company Number: FRWYE186329NOV05

PATIENT
  Age: 60 Year
  Sex: Male

DRUGS (3)
  1. GEMTUZUMAB OZOGAMICIN (GEMTUZUMAB OZOGAMICIN, INJECTION) [Suspect]
     Indication: ACUTE LEUKAEMIA
     Dosage: 15 MG 1X PER 1 DAY; INTRAVENOUS
     Route: 042
     Dates: start: 20051127, end: 20051127
  2. CYTARABINE [Suspect]
     Indication: ACUTE LEUKAEMIA
     Dosage: 3.6 G 1X PER 1 DAY; INTRAVENOUS
     Route: 042
     Dates: start: 20041124, end: 20051125
  3. NOVANTRONE (MITOXANTRONE HYDROCHLORIDE, INJECTION, 0) [Suspect]
     Indication: ACUTE LEUKAEMIA
     Dosage: 22 MG 1X PER 1 DAY; INTRAVENOUS
     Route: 042
     Dates: start: 20051124, end: 20051126

REACTIONS (1)
  - MONOPLEGIA [None]
